FAERS Safety Report 23418132 (Version 2)
Quarter: 2024Q1

REPORT INFORMATION
  Report Type: Report from Study
  Country: US (occurrence: US)
  Receive Date: 20240118
  Receipt Date: 20240214
  Transmission Date: 20240409
  Serious: Yes (Other)
  Sender: FDA-Public Use
  Company Number: US-MYLANLABS-2024M1003602

PATIENT
  Sex: Female

DRUGS (2)
  1. GLATIRAMER [Suspect]
     Active Substance: GLATIRAMER
     Indication: Multiple sclerosis
     Dosage: 40 MILLIGRAM, 3XW
     Route: 065
     Dates: end: 202205
  2. GLATIRAMER [Suspect]
     Active Substance: GLATIRAMER
     Dosage: 40 MILLIGRAM, 3XW
     Route: 065

REACTIONS (2)
  - Breast cancer [Unknown]
  - Multiple sclerosis [Unknown]
